FAERS Safety Report 8620317-4 (Version None)
Quarter: 2012Q3

REPORT INFORMATION
  Report Type: 
  Country: None (occurrence: None)
  Receive Date: 20120817
  Receipt Date: 20120817
  Transmission Date: 20120928
  Serious: Yes (Other)
  Sender: FDA-Public Use
  Company Number: None

PATIENT
  Sex: Male
  Weight: 88.4514 kg

DRUGS (2)
  1. PROPECIA [Suspect]
     Indication: ALOPECIA
     Dosage: 1 PILL DAILY PO
     Route: 048
     Dates: start: 20020310, end: 20120813
  2. PROPECIA [Suspect]
     Indication: PROPHYLAXIS
     Dosage: 1 PILL DAILY PO
     Route: 048
     Dates: start: 20020310, end: 20120813

REACTIONS (2)
  - SPERM CONCENTRATION DECREASED [None]
  - LIBIDO DECREASED [None]
